FAERS Safety Report 7889593-X (Version None)
Quarter: 2011Q4

REPORT INFORMATION
  Report Type: 
  Country: None (occurrence: None)
  Receive Date: 20111103
  Receipt Date: 20110610
  Transmission Date: 20120403
  Serious: No
  Sender: FDA-Public Use
  Company Number: US-BRISTOL-MYERS SQUIBB COMPANY-15823065

PATIENT
  Sex: Female

DRUGS (1)
  1. KENALOG-40 [Suspect]
     Indication: SINUS DISORDER
     Dates: start: 20110518

REACTIONS (4)
  - THROAT IRRITATION [None]
  - DIZZINESS [None]
  - CHEST PAIN [None]
  - FEELING JITTERY [None]
